FAERS Safety Report 4711840-3 (Version None)
Quarter: 2005Q3

REPORT INFORMATION
  Report Type: 
  Country: None (occurrence: None)
  Receive Date: 20050712
  Receipt Date: 20050601
  Transmission Date: 20060218
  Serious: Yes (Life-Threatening, Hospitalization)
  Sender: FDA-Public Use
  Company Number: PHBS2005JP08028

PATIENT
  Age: 64 Year
  Sex: Female
  Weight: 56 kg

DRUGS (4)
  1. MUCOSTA [Suspect]
     Dosage: 300 MG/DAY
     Route: 048
     Dates: start: 20050509, end: 20050518
  2. MUCOSTA [Suspect]
     Dosage: 100 MG/DAY
     Route: 048
     Dates: start: 20050520, end: 20050520
  3. VOLTAREN [Suspect]
     Indication: ARTHRALGIA
     Dosage: 75 MG/DAY
     Route: 048
     Dates: start: 20050509, end: 20050518
  4. VOLTAREN [Suspect]
     Dosage: 25 MG/DAY
     Route: 048
     Dates: start: 20050520, end: 20050520

REACTIONS (6)
  - ANAPHYLACTIC SHOCK [None]
  - BLOOD PRESSURE SYSTOLIC DECREASED [None]
  - DYSPNOEA [None]
  - ERYTHEMA [None]
  - PRURITUS [None]
  - SKIN REACTION [None]
